FAERS Safety Report 7070095-8 (Version None)
Quarter: 2010Q4

REPORT INFORMATION
  Report Type: 
  Country: None (occurrence: None)
  Receive Date: 20101028
  Receipt Date: 20100805
  Transmission Date: 20110411
  Serious: No
  Sender: FDA-Public Use
  Company Number: US-WYE-H16901810

PATIENT
  Age: 67 Year
  Sex: Female
  Weight: 54.48 kg

DRUGS (2)
  1. ADVIL [Suspect]
     Indication: SINUS HEADACHE
     Dosage: 1 TABLET AS NEEDED
     Route: 048
     Dates: start: 20060101, end: 20060101
  2. CLARITIN [Concomitant]

REACTIONS (1)
  - DRUG EFFECT DECREASED [None]
